FAERS Safety Report 9360739 (Version 2)
Quarter: 2013Q3

REPORT INFORMATION
  Report Type: Spontaneous
  Country: US (occurrence: US)
  Receive Date: 20130621
  Receipt Date: 20130705
  Transmission Date: 20140515
  Serious: No
  Sender: FDA-Public Use
  Company Number: US-BAYER-2013-076249

PATIENT
  Age: 27 Year
  Sex: Female
  Weight: 61.22 kg

DRUGS (2)
  1. ALEVE CAPLET [Suspect]
     Indication: MIGRAINE
     Dosage: 4 DF, ONCE
     Dates: start: 201306, end: 201306
  2. ALEVE CAPLET [Suspect]
     Indication: ABDOMINAL PAIN
     Dosage: 3 DF, ONCE
     Dates: start: 201306, end: 201306

REACTIONS (2)
  - Extra dose administered [None]
  - Drug ineffective [None]
